FAERS Safety Report 7838062-1 (Version None)
Quarter: 2011Q4

REPORT INFORMATION
  Report Type: 
  Country: None (occurrence: None)
  Receive Date: 20111024
  Receipt Date: 20111007
  Transmission Date: 20120403
  Serious: No
  Sender: FDA-Public Use
  Company Number: US-ABBOTT-11P-163-0864228-00

PATIENT
  Sex: Female
  Weight: 67.646 kg

DRUGS (6)
  1. TOPIRAMATE [Concomitant]
     Indication: PRODUCT USED FOR UNKNOWN INDICATION
  2. PHENTERMINE HCL [Concomitant]
     Indication: PRODUCT USED FOR UNKNOWN INDICATION
  3. ALPRAZOLAM [Concomitant]
     Indication: PRODUCT USED FOR UNKNOWN INDICATION
  4. OXYCODONE HCL [Concomitant]
     Indication: PRODUCT USED FOR UNKNOWN INDICATION
  5. LUPRON DEPOT [Suspect]
     Indication: UTERINE LEIOMYOMA
     Route: 050
  6. OXYBUTYNIN CHLORIDE [Concomitant]
     Indication: PRODUCT USED FOR UNKNOWN INDICATION

REACTIONS (2)
  - HUNGER [None]
  - WEIGHT INCREASED [None]
